FAERS Safety Report 8618889-9 (Version None)
Quarter: 2012Q3

REPORT INFORMATION
  Report Type: 
  Country: None (occurrence: None)
  Receive Date: 20120824
  Receipt Date: 20120815
  Transmission Date: 20120928
  Serious: Yes (Life-Threatening, Hospitalization)
  Sender: FDA-Public Use
  Company Number: DE-JNJFOC-20120811435

PATIENT
  Sex: Female
  Weight: 120 kg

DRUGS (2)
  1. XARELTO [Suspect]
     Indication: DEEP VEIN THROMBOSIS
     Route: 048
     Dates: start: 20120727, end: 20120814
  2. XARELTO [Suspect]
     Indication: EMBOLISM VENOUS
     Route: 048
     Dates: start: 20120727, end: 20120814

REACTIONS (4)
  - HAEMORRHAGIC ANAEMIA [None]
  - MENORRHAGIA [None]
  - SPEECH DISORDER [None]
  - HAEMOGLOBIN DECREASED [None]
